FAERS Safety Report 20871812 (Version 1)
Quarter: 2022Q2

REPORT INFORMATION
  Report Type: Report from Study
  Country: IT (occurrence: IT)
  Receive Date: 20220525
  Receipt Date: 20220525
  Transmission Date: 20220720
  Serious: Yes (Other)
  Sender: FDA-Public Use
  Company Number: IT-BRISTOL-MYERS SQUIBB COMPANY-2022-043761

PATIENT
  Age: 81 Year
  Sex: Male
  Weight: 83 kg

DRUGS (1)
  1. ELIQUIS [Suspect]
     Active Substance: APIXABAN
     Indication: Cerebrovascular accident prophylaxis
     Route: 048
     Dates: start: 20211026

REACTIONS (3)
  - Pericarditis [Recovered/Resolved]
  - Chest pain [Unknown]
  - Cardiac failure [Unknown]

NARRATIVE: CASE EVENT DATE: 20211119
